FAERS Safety Report 8235684-3 (Version None)
Quarter: 2012Q1

REPORT INFORMATION
  Report Type: 
  Country: None (occurrence: None)
  Receive Date: 20120326
  Receipt Date: 20120321
  Transmission Date: 20120608
  Serious: Yes (Life-Threatening, Hospitalization)
  Sender: FDA-Public Use
  Company Number: GXKR2012DE001262

PATIENT
  Age: 74 Year
  Sex: Female

DRUGS (2)
  1. VALSARTAN/HYDROCHLOROTHIAZIDE [Suspect]
     Dosage: UNK DF, UNK
     Route: 048
  2. VALSARTAN [Suspect]
     Dosage: 80 MG, UNK
     Route: 048

REACTIONS (2)
  - HYPERTENSIVE CRISIS [None]
  - PRODUCT SUBSTITUTION ISSUE [None]
